FAERS Safety Report 6618475-6 (Version None)
Quarter: 2010Q1

REPORT INFORMATION
  Report Type: 
  Country: None (occurrence: None)
  Receive Date: 20100308
  Receipt Date: 20100302
  Transmission Date: 20100710
  Serious: Yes (Other)
  Sender: FDA-Public Use
  Company Number: US-PERRIGO-10US007534

PATIENT
  Sex: Female
  Weight: 63.492 kg

DRUGS (3)
  1. OXYMETAZOLINE HYDROCHLORIDE 0.05% 304 [Suspect]
     Indication: NASAL CONGESTION
     Dosage: 1 SPRAY EACH NARE, BID
     Route: 045
     Dates: start: 19950101, end: 20100220
  2. LOVASTATIN [Concomitant]
     Indication: HYPERCHOLESTEROLAEMIA
     Dosage: 10 MG, QD
     Route: 048
     Dates: start: 20090101
  3. FOSAMAX [Concomitant]
     Indication: BONE DENSITY DECREASED
     Dosage: 70 MG, WEEKLY
     Route: 048
     Dates: start: 20090101

REACTIONS (2)
  - DEAFNESS UNILATERAL [None]
  - INCORRECT DRUG ADMINISTRATION DURATION [None]
